FAERS Safety Report 8797851 (Version 1)
Quarter: 2012Q4

REPORT INFORMATION
  Report Type: 
  Country: US (occurrence: US)
  Receive Date: 20120919
  Receipt Date: 20120919
  Transmission Date: 20130627
  Serious: Yes (Hospitalization, Other)
  Sender: FDA-Public Use
  Company Number: US-US-EMD SERONO, INC.-7160698

PATIENT
  Age: 53 None
  Sex: Female

DRUGS (1)
  1. REBIF [Suspect]
     Indication: MULTIPLE SCLEROSIS
     Route: 058
     Dates: start: 20101108

REACTIONS (4)
  - Urinary tract infection [Recovering/Resolving]
  - Wound [Recovering/Resolving]
  - Multiple sclerosis [Recovering/Resolving]
  - Convulsion [Recovering/Resolving]
